FAERS Safety Report 7777821-0 (Version None)
Quarter: 2011Q3

REPORT INFORMATION
  Report Type: 
  Country: None (occurrence: None)
  Receive Date: 20110926
  Receipt Date: 20110914
  Transmission Date: 20111222
  Serious: No
  Sender: FDA-Public Use
  Company Number: US-BIOGENIDEC-2011BI032510

PATIENT
  Age: 46 Year
  Sex: Female
  Weight: 92 kg

DRUGS (2)
  1. POTASSIUM [Concomitant]
     Indication: HYPOKALAEMIA
     Dates: start: 20110701
  2. TYSABRI [Suspect]
     Indication: MULTIPLE SCLEROSIS
     Route: 042
     Dates: start: 20110804

REACTIONS (4)
  - SUICIDAL IDEATION [None]
  - BLOOD PRESSURE FLUCTUATION [None]
  - DIZZINESS [None]
  - PALPITATIONS [None]
